FAERS Safety Report 9056021 (Version 2)
Quarter: 2013Q3

REPORT INFORMATION
  Report Type: Report from Study
  Country: AR (occurrence: AR)
  Receive Date: 20130205
  Receipt Date: 20130819
  Transmission Date: 20140515
  Serious: Yes (Death, Hospitalization)
  Sender: FDA-Public Use
  Company Number: AR-BRISTOL-MYERS SQUIBB COMPANY-16742678

PATIENT
  Age: 80 Year
  Sex: Male

DRUGS (5)
  1. APIXABAN [Suspect]
     Indication: THROMBOSIS PROPHYLAXIS
     Route: 048
     Dates: start: 20090310, end: 20120709
  2. NEBIVOLOL [Concomitant]
     Dates: start: 20110316
  3. ESPIRONOLACTONA [Concomitant]
     Dates: start: 20090304
  4. FUROSEMIDE [Concomitant]
     Dates: start: 20090304
  5. AMILORIDE HCL [Concomitant]
     Dates: start: 20090304

REACTIONS (4)
  - Respiratory failure [Fatal]
  - Chronic obstructive pulmonary disease [Not Recovered/Not Resolved]
  - Upper gastrointestinal haemorrhage [Unknown]
  - Duodenal ulcer [Unknown]
